FAERS Safety Report 4450958-X (Version None)
Quarter: 2004Q3

REPORT INFORMATION
  Report Type: 
  Country: None (occurrence: None)
  Receive Date: 20040916
  Receipt Date: 20040205
  Transmission Date: 20050211
  Serious: Yes (Other)
  Sender: FDA-Public Use
  Company Number: US-BRISTOL-MYERS SQUIBB COMPANY-12499125

PATIENT
  Age: 29 Year
  Sex: Female

DRUGS (5)
  1. STADOL [Suspect]
     Indication: MIGRAINE
     Route: 045
     Dates: start: 19940413, end: 19950101
  2. STADOL [Suspect]
     Dosage: DURATION: SIX MONTHS OR LESS
     Route: 030
  3. IMIPRAMINE HCL [Concomitant]
  4. DIAZEPAM [Concomitant]
  5. PROMETHAZINE [Concomitant]

REACTIONS (2)
  - DEPENDENCE [None]
  - DRUG WITHDRAWAL SYNDROME [None]
